FAERS Safety Report 13159403 (Version 2)
Quarter: 2017Q1

REPORT INFORMATION
  Report Type: Spontaneous
  Country: JP (occurrence: JP)
  Receive Date: 20170127
  Receipt Date: 20170201
  Transmission Date: 20170428
  Serious: Yes (Death, Other)
  Sender: FDA-Public Use
  Company Number: JP-PFIZER INC-2017033549

PATIENT
  Age: 64 Year
  Sex: Female
  Weight: 61 kg

DRUGS (4)
  1. CAMPTO [Suspect]
     Active Substance: IRINOTECAN
     Indication: PANCREATIC CARCINOMA
     Dosage: 247.5 MG, 1X/DAY, (152.2 MG/M2)
     Route: 041
     Dates: start: 20140703, end: 20140703
  2. ELPLAT [Suspect]
     Active Substance: OXALIPLATIN
     Indication: PANCREATIC CARCINOMA
     Dosage: 140.3 MG, 1X/DAY, (86.3 MG/M2)
     Route: 041
     Dates: start: 20140703, end: 20140703
  3. LEVOFOLINATE CALCIUM [Suspect]
     Active Substance: LEVOLEUCOVORIN CALCIUM
     Indication: PANCREATIC CARCINOMA
     Dosage: 330 MG (203 MG/M2), 1X/DAY
     Route: 041
     Dates: start: 20140703, end: 20140703
  4. 5-FU [Concomitant]
     Active Substance: FLUOROURACIL
     Indication: PANCREATIC CARCINOMA
     Dosage: 3960 MG/BODY/D1-2 (2435.4 MG/M2/D1-2)
     Route: 041
     Dates: start: 20140703, end: 20140703

REACTIONS (7)
  - Diarrhoea [Unknown]
  - Platelet count decreased [Unknown]
  - Neutrophil count decreased [Unknown]
  - Haemoglobin decreased [Unknown]
  - White blood cell count decreased [Unknown]
  - Neoplasm progression [Fatal]
  - Febrile neutropenia [Unknown]
